FAERS Safety Report 23814833 (Version 2)
Quarter: 2024Q2

REPORT INFORMATION
  Report Type: Spontaneous
  Country: US (occurrence: US)
  Receive Date: 20240503
  Receipt Date: 20240514
  Transmission Date: 20240716
  Serious: Yes (Hospitalization)
  Sender: FDA-Public Use
  Company Number: US-KARYOPHARM-2024KPT000963

PATIENT

DRUGS (20)
  1. XPOVIO [Suspect]
     Active Substance: SELINEXOR
     Indication: Plasma cell myeloma
     Dosage: 40 MG, WEEKLY
     Route: 048
     Dates: start: 20240418, end: 20240425
  2. KEFLEX [Concomitant]
     Active Substance: CEPHALEXIN
  3. PROCHLORPERAZINE MALEATE [Concomitant]
     Active Substance: PROCHLORPERAZINE MALEATE
  4. DAPSONE [Concomitant]
     Active Substance: DAPSONE
  5. ESOMEPRAZOLE MAGNESIUM [Concomitant]
     Active Substance: ESOMEPRAZOLE MAGNESIUM
  6. HUMULIN R [Concomitant]
     Active Substance: INSULIN HUMAN
  7. ATIVAN [Concomitant]
     Active Substance: LORAZEPAM
  8. ASPIRIN [Concomitant]
     Active Substance: ASPIRIN
  9. LACTASE [Concomitant]
     Active Substance: LACTASE
  10. ACYCLOVIR [Concomitant]
     Active Substance: ACYCLOVIR
  11. DEXAMETHASONE [Concomitant]
     Active Substance: DEXAMETHASONE
  12. LORAZEPAM [Concomitant]
     Active Substance: LORAZEPAM
  13. NORCO [Concomitant]
     Active Substance: ACETAMINOPHEN\HYDROCODONE BITARTRATE
  14. POMALIDOMIDE [Concomitant]
     Active Substance: POMALIDOMIDE
  15. PROMACTA [Concomitant]
     Active Substance: ELTROMBOPAG OLAMINE
  16. SYNTHROID [Concomitant]
     Active Substance: LEVOTHYROXINE SODIUM
  17. SYSTANE COMPLETE [Concomitant]
     Active Substance: PROPYLENE GLYCOL
  18. ZARXIO [Concomitant]
     Active Substance: FILGRASTIM-SNDZ
  19. ZOFRAN [Concomitant]
     Active Substance: ONDANSETRON HYDROCHLORIDE
  20. ZOLEDRONIC ACID [Concomitant]
     Active Substance: ZOLEDRONIC ACID

REACTIONS (6)
  - Blood fibrinogen decreased [Unknown]
  - Vulval cellulitis [Unknown]
  - Blood creatinine increased [Unknown]
  - Pulmonary oedema [Unknown]
  - Plasma cell myeloma [Unknown]
  - Nausea [Not Recovered/Not Resolved]

NARRATIVE: CASE EVENT DATE: 20240101
